FAERS Safety Report 15847733 (Version 3)
Quarter: 2019Q1

REPORT INFORMATION
  Report Type: Spontaneous
  Country: AT (occurrence: AT)
  Receive Date: 20190121
  Receipt Date: 20190214
  Transmission Date: 20190417
  Serious: Yes (Other)
  Sender: FDA-Public Use
  Company Number: PHHY2019AT008291

PATIENT
  Age: 67 Year
  Sex: Male

DRUGS (29)
  1. QUETIAPINE. [Suspect]
     Active Substance: QUETIAPINE
     Indication: PRODUCT USED FOR UNKNOWN INDICATION
     Dosage: 25 MG, QD
     Route: 065
  2. EFFENTORA [Suspect]
     Active Substance: FENTANYL CITRATE
     Indication: PRODUCT USED FOR UNKNOWN INDICATION
     Dosage: 400 UG, BID
     Route: 065
     Dates: start: 20150824, end: 20150828
  3. EFFENTORA [Suspect]
     Active Substance: FENTANYL CITRATE
     Dosage: 600 UG, UNK
     Route: 065
     Dates: start: 20161014, end: 20161102
  4. DIPIDOLOR [Suspect]
     Active Substance: PIRITRAMIDE
     Indication: PRODUCT USED FOR UNKNOWN INDICATION
     Dosage: 15 MG, UNK
     Route: 065
  5. SEROQUEL [Suspect]
     Active Substance: QUETIAPINE FUMARATE
     Indication: PRODUCT USED FOR UNKNOWN INDICATION
     Dosage: 100 MG, QD
     Route: 065
     Dates: start: 20150824, end: 20150828
  6. SEROQUEL [Suspect]
     Active Substance: QUETIAPINE FUMARATE
     Dosage: 25 MG, QD
     Route: 065
  7. METOCLOPRAMIDE. [Suspect]
     Active Substance: METOCLOPRAMIDE
     Indication: PRODUCT USED FOR UNKNOWN INDICATION
     Dosage: UNK
     Route: 065
  8. DULOXETINE. [Suspect]
     Active Substance: DULOXETINE
     Indication: PRODUCT USED FOR UNKNOWN INDICATION
     Dosage: 60 MG, BID
     Route: 065
  9. PANTIP [Suspect]
     Active Substance: PANTOPRAZOLE SODIUM
     Dosage: 40 MG, BID
     Route: 065
  10. DRONABINOL. [Suspect]
     Active Substance: DRONABINOL
     Indication: PRODUCT USED FOR UNKNOWN INDICATION
     Dosage: 6 GTT, TID
     Route: 065
  11. HYDAL [Suspect]
     Active Substance: HYDROMORPHONE HYDROCHLORIDE
     Indication: PAIN
     Dosage: 5.2 MG, UNK (UP TO 4 TIMES DAILY)
     Route: 065
  12. BUPRENORPHINE. [Suspect]
     Active Substance: BUPRENORPHINE
     Indication: PRODUCT USED FOR UNKNOWN INDICATION
     Dosage: 140 MCG, UNK
     Route: 062
     Dates: start: 20161014, end: 20161102
  13. BUPRENORPHINE. [Suspect]
     Active Substance: BUPRENORPHINE
     Dosage: 140 MCG, UNK
     Route: 062
     Dates: start: 20150824, end: 20150828
  14. BUPRENORPHINE. [Suspect]
     Active Substance: BUPRENORPHINE
     Dosage: 105 MCG, UNK
     Route: 062
  15. BUPRENORPHINE. [Suspect]
     Active Substance: BUPRENORPHINE
     Dosage: 70 MCG, UNK
     Route: 062
     Dates: start: 20130826, end: 20130919
  16. SUBOXONE [Suspect]
     Active Substance: BUPRENORPHINE HYDROCHLORIDE\NALOXONE HYDROCHLORIDE
     Dosage: 2 MG, QD ( (UPTO 6 TIMES DAILY AND  2MG/0/5 MG 4 TIMES DAILY))
     Route: 065
  17. CATAPRESAN [Suspect]
     Active Substance: CLONIDINE
     Indication: PRODUCT USED FOR UNKNOWN INDICATION
     Dosage: 0.15 MG, PRN
     Route: 065
  18. LORAZEPAM. [Suspect]
     Active Substance: LORAZEPAM
     Indication: PRODUCT USED FOR UNKNOWN INDICATION
     Dosage: 2.5 MG, UNK
     Route: 065
  19. PANTIP [Suspect]
     Active Substance: PANTOPRAZOLE SODIUM
     Indication: PRODUCT USED FOR UNKNOWN INDICATION
     Dosage: 40 MG, 1-0-0
     Route: 065
  20. SUBOXONE [Suspect]
     Active Substance: BUPRENORPHINE HYDROCHLORIDE\NALOXONE HYDROCHLORIDE
     Indication: PAIN
     Dosage: 8 MG, UNK
     Route: 065
  21. LEXOTANIL [Suspect]
     Active Substance: BROMAZEPAM
     Indication: PRODUCT USED FOR UNKNOWN INDICATION
     Dosage: 3 MG, UNK
     Route: 065
  22. ONDANSETRON [Suspect]
     Active Substance: ONDANSETRON
     Indication: PRODUCT USED FOR UNKNOWN INDICATION
     Dosage: UNK
     Route: 065
  23. EFFENTORA [Suspect]
     Active Substance: FENTANYL CITRATE
     Dosage: 400 UG, UNK  (2-3 TIMES DAILY)
     Route: 065
  24. SUBOXONE [Suspect]
     Active Substance: BUPRENORPHINE HYDROCHLORIDE\NALOXONE HYDROCHLORIDE
     Dosage: 12 MG, UNK
     Route: 065
  25. LYRICA [Suspect]
     Active Substance: PREGABALIN
     Indication: PRODUCT USED FOR UNKNOWN INDICATION
     Dosage: 75 MG, QD
     Route: 065
  26. IMODIUM [Suspect]
     Active Substance: LOPERAMIDE HYDROCHLORIDE
     Indication: PRODUCT USED FOR UNKNOWN INDICATION
     Dosage: UNK
     Route: 065
  27. OMEGAVEN [Suspect]
     Active Substance: FISH OIL
     Indication: PRODUCT USED FOR UNKNOWN INDICATION
     Dosage: UNK
     Route: 065
  28. MIRTAZAPINE. [Suspect]
     Active Substance: MIRTAZAPINE
     Indication: PRODUCT USED FOR UNKNOWN INDICATION
     Dosage: UNK
     Route: 065
  29. EFFENTORA [Suspect]
     Active Substance: FENTANYL CITRATE
     Dosage: 100 UG, QID
     Route: 065

REACTIONS (12)
  - Drug withdrawal syndrome [Recovered/Resolved]
  - Drug dependence [Unknown]
  - Inappropriate schedule of product administration [Unknown]
  - Abdominal pain [Unknown]
  - Diarrhoea [Unknown]
  - Depression [Unknown]
  - Decreased appetite [Unknown]
  - Therapeutic response decreased [Unknown]
  - Off label use [Unknown]
  - Tremor [Unknown]
  - Vertigo [Unknown]
  - Nausea [Unknown]
